FAERS Safety Report 6708613-9 (Version None)
Quarter: 2010Q2

REPORT INFORMATION
  Report Type: 
  Country: None (occurrence: None)
  Receive Date: 20100503
  Receipt Date: 20100423
  Transmission Date: 20101027
  Serious: Yes (Hospitalization, Other)
  Sender: FDA-Public Use
  Company Number: BR-ABBOTT-10P-020-0640429-00

PATIENT
  Sex: Female
  Weight: 79 kg

DRUGS (4)
  1. HUMIRA [Suspect]
     Indication: RHEUMATOID ARTHRITIS
     Route: 058
     Dates: start: 20091001, end: 20100211
  2. CALCITRIOL [Concomitant]
     Indication: THYROID DISORDER
     Route: 048
  3. OS-CAL D [Concomitant]
     Indication: THYROID DISORDER
     Route: 048
  4. PURAN T4 [Concomitant]
     Indication: THYROID DISORDER
     Route: 048

REACTIONS (4)
  - ABDOMINAL PAIN [None]
  - GENITAL DISORDER FEMALE [None]
  - HAEMORRHAGE [None]
  - PAIN [None]
